FAERS Safety Report 26050846 (Version 1)
Quarter: 2025Q4

REPORT INFORMATION
  Report Type: Spontaneous
  Country: US (occurrence: US)
  Receive Date: 20251116
  Receipt Date: 20251116
  Transmission Date: 20260118
  Serious: Yes (Hospitalization, Other)
  Sender: BAXTER
  Company Number: US-MLMSERVICE-20251031-PI693896-00175-4

PATIENT
  Age: 49 Year
  Sex: Female

DRUGS (6)
  1. HEPARIN SODIUM [Suspect]
     Active Substance: HEPARIN SODIUM
     Indication: Cardiac ventricular thrombosis
     Dosage: UNK
     Route: 042
  2. HEPARIN SODIUM [Suspect]
     Active Substance: HEPARIN SODIUM
     Indication: Anticoagulant therapy
  3. DOXORUBICIN [Suspect]
     Active Substance: DOXORUBICIN
     Indication: Transitional cell carcinoma
     Dosage: 4 CYCLES
     Route: 065
  4. METHOTREXATE [Suspect]
     Active Substance: METHOTREXATE
     Indication: Transitional cell carcinoma
     Dosage: 4 CYCLES
     Route: 065
  5. VINBLASTINE [Suspect]
     Active Substance: VINBLASTINE
     Indication: Transitional cell carcinoma
     Dosage: 4 CYCLES
     Route: 065
  6. CISPLATIN [Suspect]
     Active Substance: CISPLATIN
     Indication: Transitional cell carcinoma
     Dosage: 4 CYCLES
     Route: 065

REACTIONS (3)
  - Vaginal haemorrhage [Unknown]
  - Thrombocytopenia [Unknown]
  - Cytopenia [Unknown]
